FAERS Safety Report 24669284 (Version 1)
Quarter: 2024Q4

REPORT INFORMATION
  Report Type: Spontaneous
  Country: US (occurrence: None)
  Receive Date: 20241126
  Receipt Date: 20241126
  Transmission Date: 20250115
  Serious: Yes (Other)
  Sender: Public
  Company Number: None

PATIENT
  Age: 72 Year
  Sex: Female

DRUGS (1)
  1. POMALYST [Suspect]
     Active Substance: POMALIDOMIDE
     Indication: Plasma cell myeloma
     Dosage: FREQUENCY : DAILY;?
     Route: 048
     Dates: start: 20240809, end: 20241019

REACTIONS (5)
  - Adverse drug reaction [None]
  - Chills [None]
  - Pruritus [None]
  - Rash [None]
  - Therapy interrupted [None]

NARRATIVE: CASE EVENT DATE: 20241126
